FAERS Safety Report 17804700 (Version 1)
Quarter: 2020Q2

REPORT INFORMATION
  Report Type: Spontaneous
  Country: US (occurrence: US)
  Receive Date: 20200519
  Receipt Date: 20200519
  Transmission Date: 20200714
  Serious: Yes (Other)
  Sender: FDA-Public Use
  Company Number: US-BEH-2020117370

PATIENT
  Age: 59 Year
  Sex: Female

DRUGS (4)
  1. HUMAN IMMUNOGLOBULIN (INN) [Suspect]
     Active Substance: HUMAN IMMUNOGLOBULIN G
     Indication: IMMUNE THROMBOCYTOPENIA
     Dosage: 50 GRAM (1G/KG), TOT, DAY 1
     Route: 042
  2. DEXAMETHASONE. [Concomitant]
     Active Substance: DEXAMETHASONE
     Dosage: 40 MILLIGRAM
     Route: 065
  3. HUMAN IMMUNOGLOBULIN (INN) [Suspect]
     Active Substance: HUMAN IMMUNOGLOBULIN G
     Dosage: 50 GRAM (1G/KG), TOT, DAY 2
     Route: 042
  4. DEXAMETHASONE. [Concomitant]
     Active Substance: DEXAMETHASONE
     Indication: IMMUNE THROMBOCYTOPENIA
     Dosage: 40 MILLIGRAM
     Route: 065

REACTIONS (10)
  - Blood bilirubin increased [Recovered/Resolved]
  - Acute kidney injury [Recovered/Resolved]
  - Blood bilirubin unconjugated increased [Recovered/Resolved]
  - Haptoglobin decreased [Recovered/Resolved]
  - Coombs direct test positive [Recovered/Resolved]
  - Blood creatinine increased [Recovered/Resolved]
  - Chromaturia [Recovered/Resolved]
  - Blood lactate dehydrogenase increased [Recovered/Resolved]
  - Haemolytic anaemia [Recovered/Resolved]
  - Dizziness [Recovered/Resolved]
